FAERS Safety Report 19909109 (Version 1)
Quarter: 2021Q4

REPORT INFORMATION
  Report Type: Spontaneous
  Country: US (occurrence: US)
  Receive Date: 20211001
  Receipt Date: 20211001
  Transmission Date: 20220303
  Serious: No
  Sender: FDA-Public Use
  Company Number: US-AMARIN PHARMA, INC.-2020AMR000807

PATIENT
  Sex: Male

DRUGS (2)
  1. VASCEPA [Suspect]
     Active Substance: ICOSAPENT ETHYL
     Indication: Blood triglycerides abnormal
     Route: 048
     Dates: start: 2019, end: 202001
  2. VASCEPA [Suspect]
     Active Substance: ICOSAPENT ETHYL
     Indication: Type 2 diabetes mellitus
     Route: 048
     Dates: start: 202001

REACTIONS (4)
  - Platelet count decreased [Unknown]
  - Prescribed underdose [Recovered/Resolved]
  - Blood triglycerides increased [Not Recovered/Not Resolved]
  - Drug ineffective [Unknown]

NARRATIVE: CASE EVENT DATE: 20190101
